FAERS Safety Report 9902746 (Version 1)
Quarter: 2014Q1

REPORT INFORMATION
  Report Type: Report from Study
  Country: CA (occurrence: CA)
  Receive Date: 20140217
  Receipt Date: 20140217
  Transmission Date: 20141002
  Serious: Yes (Hospitalization)
  Sender: FDA-Public Use
  Company Number: CA-JNJFOC-20140208018

PATIENT
  Sex: Male

DRUGS (7)
  1. SIMPONI [Suspect]
     Indication: RHEUMATOID ARTHRITIS
     Route: 058
     Dates: start: 20130705
  2. PREDNISOLONE [Concomitant]
     Dosage: DIE
     Route: 048
  3. ARAVA [Concomitant]
     Dosage: DIE
     Route: 048
  4. VOLTAREN [Concomitant]
     Route: 048
  5. VITAMIN D [Concomitant]
     Dosage: 10000 UI
     Route: 048
  6. PANTOPRAZOLE [Concomitant]
     Dosage: 10000 UI DIE
     Route: 048
  7. PLAQUENIL [Concomitant]
     Dosage: 10000 UI
     Route: 048

REACTIONS (1)
  - Candida pneumonia [Unknown]
